FAERS Safety Report 20889695 (Version 2)
Quarter: 2022Q2

REPORT INFORMATION
  Report Type: Spontaneous
  Country: US (occurrence: US)
  Receive Date: 20220530
  Receipt Date: 20220602
  Transmission Date: 20220721
  Serious: No
  Sender: FDA-Public Use
  Company Number: US-Ipsen Biopharmaceuticals, Inc.-2022-14997

PATIENT
  Age: 58 Year
  Sex: Female
  Weight: 95.25 kg

DRUGS (3)
  1. SOMATULINE DEPOT [Suspect]
     Active Substance: LANREOTIDE ACETATE
     Indication: Acromegaly
     Dosage: 120 MG/0.5 ML EVERY 28 DAYS
     Route: 058
     Dates: start: 2014
  2. ELIQUIS [Concomitant]
     Active Substance: APIXABAN
  3. METFORMIN [Concomitant]
     Active Substance: METFORMIN HYDROCHLORIDE

REACTIONS (7)
  - Headache [Unknown]
  - Fatigue [Unknown]
  - Asthenia [Unknown]
  - Product administered by wrong person [Unknown]
  - Incorrect dose administered [Unknown]
  - Syringe issue [Unknown]
  - Off label use [Unknown]

NARRATIVE: CASE EVENT DATE: 20220501
